FAERS Safety Report 6399519-6 (Version None)
Quarter: 2009Q4

REPORT INFORMATION
  Report Type: 
  Country: None (occurrence: None)
  Receive Date: 20091013
  Receipt Date: 20091013
  Transmission Date: 20100525
  Serious: No
  Sender: FDA-Public Use
  Company Number: None

PATIENT
  Age: 38 Year
  Sex: Female
  Weight: 54.4316 kg

DRUGS (1)
  1. LEVAQUIN [Suspect]
     Indication: ABDOMINAL PAIN
     Dosage: 500MG Q DAILY IV   1 DOSE
     Route: 042
     Dates: start: 20090729

REACTIONS (1)
  - RASH [None]
